FAERS Safety Report 10948935 (Version 1)
Quarter: 2015Q1

REPORT INFORMATION
  Report Type: Spontaneous
  Country: DE (occurrence: None)
  Receive Date: 20150320
  Receipt Date: 20150320
  Transmission Date: 20150721
  Serious: Yes (Hospitalization)
  Sender: FDA-Public Use
  Company Number: 2015FE00573

PATIENT
  Age: 64 Year
  Sex: Male

DRUGS (6)
  1. ALLOPURINOL. [Concomitant]
     Active Substance: ALLOPURINOL
  2. FIRMAGON [Suspect]
     Active Substance: DEGARELIX ACETATE
     Indication: PROSTATE CANCER
     Route: 058
     Dates: start: 20121219
  3. ZYTIGA (ABIRATERONE ACETATE) [Concomitant]
  4. PREDNISOLON /00016201/ (PREDNISOLONE) [Concomitant]
  5. BISOPROLOL [Concomitant]
     Active Substance: BISOPROLOL
  6. BEZAFIBRAT (BEZAFIBRATE) [Concomitant]

REACTIONS (5)
  - Staphylococcal sepsis [None]
  - Urinary tract infection [None]
  - Systemic inflammatory response syndrome [None]
  - Injection site abscess [None]
  - Dizziness [None]

NARRATIVE: CASE EVENT DATE: 20150210
